FAERS Safety Report 15523560 (Version 1)
Quarter: 2018Q4

REPORT INFORMATION
  Report Type: Spontaneous
  Country: US (occurrence: US)
  Receive Date: 20181018
  Receipt Date: 20181018
  Transmission Date: 20190205
  Serious: Yes (Other)
  Sender: FDA-Public Use
  Company Number: US-ELI_LILLY_AND_COMPANY-US201810006309

PATIENT
  Sex: Female

DRUGS (2)
  1. HUMALOG [Suspect]
     Active Substance: INSULIN LISPRO
     Indication: GESTATIONAL DIABETES
     Dosage: UNK UNK, UNKNOWN
     Route: 065
  2. INSULIN HUMAN [Suspect]
     Active Substance: INSULIN HUMAN
     Indication: GESTATIONAL DIABETES
     Dosage: UNK, UNKNOWN
     Route: 065

REACTIONS (10)
  - Blood glucose increased [Unknown]
  - Nervousness [Recovered/Resolved]
  - Ovarian cyst [Not Recovered/Not Resolved]
  - Stress [Recovered/Resolved]
  - Fear [Recovered/Resolved]
  - Epistaxis [Recovered/Resolved]
  - Blood glucose decreased [Recovered/Resolved]
  - Seizure [Unknown]
  - Maternal exposure during pregnancy [Not Recovered/Not Resolved]
  - Headache [Recovered/Resolved]
